FAERS Safety Report 8791259 (Version 1)
Quarter: 2012Q4

REPORT INFORMATION
  Report Type: Spontaneous
  Country: CN (occurrence: None)
  Receive Date: 20120911
  Receipt Date: 20120911
  Transmission Date: 20130627
  Serious: Yes (Death, Other)
  Sender: FDA-Public Use
  Company Number: 2012P1056335

PATIENT
  Age: 10 Month
  Sex: Male

DRUGS (8)
  1. CEFUROXIME [Suspect]
     Route: 042
     Dates: start: 20110711, end: 20110711
  2. CEFUROXIME [Suspect]
     Route: 042
     Dates: start: 20110711, end: 20110711
  3. RIBAVIRIN [Suspect]
     Route: 042
     Dates: start: 20110711, end: 20110711
  4. RIBAVIRIN [Suspect]
     Route: 042
     Dates: start: 20110711, end: 20110711
  5. ROTAVIRUS VACCINE, LIVE, ORAL, TETRAVALENT [Suspect]
     Route: 048
     Dates: start: 20101103, end: 20101103
  6. ROTAVIRUS VACCINE, LIVE, ORAL, TETRAVALENT [Suspect]
     Route: 048
     Dates: start: 20101203, end: 20101203
  7. AZITHROMYCIN [Suspect]
     Route: 042
     Dates: start: 20110711, end: 20110711
  8. AZITHROMYCIN [Suspect]
     Route: 042
     Dates: start: 20110711, end: 20110711

REACTIONS (9)
  - Upper respiratory tract infection [None]
  - Cardiac arrest [None]
  - Cyanosis [None]
  - Mydriasis [None]
  - Nervous system disorder [None]
  - Multi-organ failure [None]
  - Bacterial infection [None]
  - Overdose [None]
  - Meningitis [None]
